FAERS Safety Report 17109198 (Version 1)
Quarter: 2019Q4

REPORT INFORMATION
  Report Type: Spontaneous
  Country: CH (occurrence: CH)
  Receive Date: 20191204
  Receipt Date: 20191204
  Transmission Date: 20200122
  Serious: Yes (Other)
  Sender: FDA-Public Use
  Company Number: CH-ALKEM LABORATORIES LIMITED-CH-ALKEM-2019-08968

PATIENT
  Age: 30 Year
  Sex: Male

DRUGS (9)
  1. METHOTREXATE. [Suspect]
     Active Substance: METHOTREXATE
     Indication: AORTITIS
     Dosage: UNK UNK
     Route: 065
  2. METHOTREXATE. [Suspect]
     Active Substance: METHOTREXATE
     Indication: BEHCET^S SYNDROME
  3. COLCHICINE. [Suspect]
     Active Substance: COLCHICINE
     Indication: ERYTHEMA NODOSUM
  4. COLCHICINE. [Suspect]
     Active Substance: COLCHICINE
     Indication: ENDOCARDITIS
  5. COLCHICINE. [Suspect]
     Active Substance: COLCHICINE
     Indication: BEHCET^S SYNDROME
  6. METHOTREXATE. [Suspect]
     Active Substance: METHOTREXATE
     Indication: IMMUNOSUPPRESSION
  7. COLCHICINE. [Suspect]
     Active Substance: COLCHICINE
     Indication: AORTITIS
     Dosage: UNK
     Route: 065
  8. METHOTREXATE. [Suspect]
     Active Substance: METHOTREXATE
     Indication: ENDOCARDITIS
  9. METHOTREXATE. [Suspect]
     Active Substance: METHOTREXATE
     Indication: ERYTHEMA NODOSUM

REACTIONS (2)
  - Treatment noncompliance [Unknown]
  - Treatment failure [Unknown]
